FAERS Safety Report 20060987 (Version 1)
Quarter: 2021Q4

REPORT INFORMATION
  Report Type: Spontaneous
  Country: BR (occurrence: BR)
  Receive Date: 20211112
  Receipt Date: 20211112
  Transmission Date: 20220303
  Serious: Yes (Other)
  Sender: FDA-Public Use
  Company Number: None

PATIENT
  Age: 42 Year
  Sex: Female
  Weight: 85 kg

DRUGS (6)
  1. KEYTRUDA [Suspect]
     Active Substance: PEMBROLIZUMAB
     Indication: Breast cancer
     Dosage: 200 MILLIGRAM EVERY 21 DAYS
     Route: 042
     Dates: start: 20200103, end: 20200103
  2. GEMCITABINE HYDROCHLORIDE [Suspect]
     Active Substance: GEMCITABINE HYDROCHLORIDE
     Indication: Breast cancer
     Dosage: 1000 MILLIGRAM/SQ. METER, ADMINISTRATION IN D1 AND D8, WITH INTERVAL OF 21 DAYS BETWEEN THE BEGINNIN
     Route: 042
     Dates: start: 20200116, end: 20200116
  3. GEMCITABINE HYDROCHLORIDE [Suspect]
     Active Substance: GEMCITABINE HYDROCHLORIDE
     Dosage: 1000 MILLIGRAM/SQ. METER, ADMINISTRATION IN D1 AND D8, WITH INTERVAL OF 21 DAYS BETWEEN THE BEGINNIN
     Route: 042
     Dates: start: 20200116, end: 20200116
  4. CARBOPLATIN [Suspect]
     Active Substance: CARBOPLATIN
     Indication: Breast cancer
     Dosage: 296 MILLIGRAM, ADMINISTRATION IN D1 AND D8, WITH INTERVAL OF 21 DAYS BETWEEN THE BEGINNINGS OF EACH
     Route: 042
     Dates: start: 20200116, end: 20200116
  5. CARBOPLATIN [Suspect]
     Active Substance: CARBOPLATIN
     Dosage: 296 MILLIGRAM, ADMINISTRATION IN D1 AND D8, WITH INTERVAL OF 21 DAYS BETWEEN THE BEGINNINGS OF EACH
     Route: 042
     Dates: start: 20200116, end: 20200116
  6. CARBOPLATIN [Suspect]
     Active Substance: CARBOPLATIN
     Dosage: 296 MILLIGRAM, ADMINISTRATION IN D1 AND D8, WITH INTERVAL OF 21 DAYS BETWEEN THE BEGINNINGS OF EACH
     Route: 042
     Dates: start: 20200116, end: 20200116

REACTIONS (2)
  - Leukopenia [Recovered/Resolved]
  - Neutropenia [Recovered/Resolved]

NARRATIVE: CASE EVENT DATE: 20200123
